FAERS Safety Report 23865231 (Version 1)
Quarter: 2024Q2

REPORT INFORMATION
  Report Type: Spontaneous
  Country: US (occurrence: US)
  Receive Date: 20240517
  Receipt Date: 20240517
  Transmission Date: 20240716
  Serious: No
  Sender: FDA-Public Use
  Company Number: US-SA-SAC20240510001132

PATIENT
  Sex: Female

DRUGS (1)
  1. AMBIEN [Suspect]
     Active Substance: ZOLPIDEM TARTRATE
     Indication: Nervous system disorder
     Dosage: UNK
     Route: 065

REACTIONS (1)
  - Intentional product use issue [Unknown]
